FAERS Safety Report 5713001-8 (Version None)
Quarter: 2008Q2

REPORT INFORMATION
  Report Type: 
  Country: None (occurrence: None)
  Receive Date: 20080422
  Receipt Date: 20080417
  Transmission Date: 20081010
  Serious: Yes (Hospitalization)
  Sender: FDA-Public Use
  Company Number: CH-ROCHE-552105

PATIENT
  Age: 49 Year
  Sex: Male

DRUGS (16)
  1. CELLCEPT [Suspect]
     Indication: LIVER TRANSPLANT
     Route: 048
     Dates: start: 20080206
  2. HEPATECT [Suspect]
     Indication: LIVER TRANSPLANT
     Route: 065
     Dates: start: 20080206, end: 20080212
  3. PROSTIN VR PEDIATRIC [Suspect]
     Indication: LIVER TRANSPLANT
     Route: 065
     Dates: start: 20080206, end: 20080212
  4. PROGRAF [Suspect]
     Indication: LIVER TRANSPLANT
     Route: 048
     Dates: start: 20080206
  5. SIMULECT [Suspect]
     Indication: LIVER TRANSPLANT
     Dosage: FORM: VIAL
     Route: 065
     Dates: start: 20080206, end: 20080210
  6. ZEFFIX [Concomitant]
     Dosage: FORM: FILMCOATED TABLET
     Route: 048
     Dates: start: 20080206
  7. MYCOSTATIN [Concomitant]
     Dosage: STRENGTH: 100000 IU, FORM: LIQUIDS, SUSPENSION
     Route: 048
     Dates: start: 20080206
  8. POLYMYCIN B SULFATE [Concomitant]
     Dates: start: 20080206
  9. NEOMYCIN [Concomitant]
     Dates: start: 20080206
  10. DAFALGAN [Concomitant]
     Route: 048
     Dates: start: 20080206
  11. HEPARIN [Concomitant]
     Dates: start: 20080206, end: 20080213
  12. NEXIUM [Concomitant]
     Route: 048
     Dates: start: 20080206
  13. ADALAT [Concomitant]
     Route: 048
     Dates: start: 20080212, end: 20080212
  14. ALBUMIN (HUMAN) [Concomitant]
     Dosage: FORM: INFUSION AMPOULES, BAGS
     Route: 041
  15. MORPHINE HCL ELIXIR [Concomitant]
  16. SOLU-MEDROL [Concomitant]
     Indication: LIVER TRANSPLANT
     Route: 041
     Dates: start: 20080206, end: 20080206

REACTIONS (3)
  - HAEMATOMA [None]
  - PYREXIA [None]
  - SYSTEMIC INFLAMMATORY RESPONSE SYNDROME [None]
